FAERS Safety Report 19819552 (Version 3)
Quarter: 2022Q1

REPORT INFORMATION
  Report Type: Spontaneous
  Country: US (occurrence: US)
  Receive Date: 20210913
  Receipt Date: 20220117
  Transmission Date: 20220423
  Serious: Yes (Hospitalization, Other)
  Sender: FDA-Public Use
  Company Number: US-BOEHRINGERINGELHEIM-2021-BI-126411

PATIENT
  Age: 65 Year
  Sex: Male

DRUGS (9)
  1. SPIRIVA [Suspect]
     Active Substance: TIOTROPIUM BROMIDE MONOHYDRATE
     Indication: Chronic obstructive pulmonary disease
     Dosage: 2 PUFFS
     Dates: start: 202010, end: 2021
  2. COMBIVENT RESPIMAT [Suspect]
     Active Substance: ALBUTEROL SULFATE\IPRATROPIUM BROMIDE
     Indication: Chronic obstructive pulmonary disease
     Dosage: 2 PUFFS ONCE DAILY
     Dates: start: 20211230
  3. SPIRIVA RESPIMAT [Suspect]
     Active Substance: TIOTROPIUM BROMIDE
     Indication: Chronic obstructive pulmonary disease
     Dosage: 2 PUFFS ONCE DAILY
  4. ALBUTEROL [Concomitant]
     Active Substance: ALBUTEROL
     Indication: Inhalation therapy
  5. METOPROLOL [Concomitant]
     Active Substance: METOPROLOL
     Indication: Product used for unknown indication
  6. FUROSEMIDE [Concomitant]
     Active Substance: FUROSEMIDE
     Indication: Product used for unknown indication
  7. WARFARIN [Concomitant]
     Active Substance: WARFARIN
     Indication: Product used for unknown indication
  8. VALSARTAN [Concomitant]
     Active Substance: VALSARTAN
     Indication: Product used for unknown indication
  9. SIMVASTATIN [Concomitant]
     Active Substance: SIMVASTATIN
     Indication: Product used for unknown indication

REACTIONS (3)
  - Haemoptysis [Not Recovered/Not Resolved]
  - Pulmonary oedema [Recovered/Resolved]
  - COVID-19 [Recovering/Resolving]

NARRATIVE: CASE EVENT DATE: 20210101
